FAERS Safety Report 21898431 (Version 3)
Quarter: 2023Q1

REPORT INFORMATION
  Report Type: Spontaneous
  Country: JP (occurrence: JP)
  Receive Date: 20230123
  Receipt Date: 20230303
  Transmission Date: 20230418
  Serious: Yes (Hospitalization, Other)
  Sender: FDA-Public Use
  Company Number: JP-PFIZER INC-PV202300012445

PATIENT
  Age: 85 Year
  Sex: Female

DRUGS (11)
  1. PAXLOVID [Suspect]
     Active Substance: NIRMATRELVIR\RITONAVIR
     Indication: COVID-19 treatment
     Dosage: [PF-07321332 150 MG]/[RITONAVIR 100 MG]; 2X/DAY
     Route: 048
     Dates: start: 20230101, end: 20230102
  2. SITAFLOXACIN [Suspect]
     Active Substance: SITAFLOXACIN
     Dosage: 1 G, 1X/DAY
     Route: 048
     Dates: start: 20230101, end: 20230102
  3. AMBROXOL [Suspect]
     Active Substance: AMBROXOL
     Dosage: 45 MG, 1X/DAY
     Route: 048
     Dates: start: 20230101, end: 20230102
  4. ABILIFY [Concomitant]
     Active Substance: ARIPIPRAZOLE
     Indication: Bipolar disorder
     Dosage: 3 MG, 1X/DAY
     Route: 048
     Dates: start: 20210712, end: 20230101
  5. ELDECALCITOL [Concomitant]
     Active Substance: ELDECALCITOL
     Dosage: 0.5 UG, 1X/DAY
     Route: 048
     Dates: start: 20180507
  6. MEMANTINE HYDROCHLORIDE [Concomitant]
     Active Substance: MEMANTINE HYDROCHLORIDE
     Dosage: 5 MG, 1X/DAY
     Route: 048
     Dates: start: 20210322
  7. MEMANTINE HYDROCHLORIDE [Concomitant]
     Active Substance: MEMANTINE HYDROCHLORIDE
     Dosage: 10 MG, 1X/DAY
     Route: 048
     Dates: start: 20210527
  8. REMINYL [Concomitant]
     Active Substance: GALANTAMINE
     Dosage: 4 MG, 2X/DAY
     Route: 048
     Dates: start: 20210930
  9. PL [Concomitant]
     Active Substance: ACETAMINOPHEN\CAFFEINE\PROMETHAZINE\SALICYLAMIDE
     Dosage: 4G(1G X 4/DAY)
     Route: 048
     Dates: start: 20221231, end: 20230102
  10. EPRAZINONE [Concomitant]
     Active Substance: EPRAZINONE
     Dosage: 20 MG, 4X/DAY
     Route: 048
     Dates: start: 20221231, end: 20230102
  11. TRANEXAMIC ACID [Concomitant]
     Active Substance: TRANEXAMIC ACID
     Dosage: 250 MG, 4X/DAY
     Route: 048
     Dates: start: 20221231, end: 20230102

REACTIONS (20)
  - Drug ineffective [Unknown]
  - Pneumonia aspiration [Recovered/Resolved]
  - Hypertension [Recovered/Resolved]
  - Dehydration [Recovered/Resolved]
  - Blood creatine phosphokinase increased [Unknown]
  - Stress [Unknown]
  - Feeding disorder [Unknown]
  - Blood cholesterol increased [Unknown]
  - Blood lactate dehydrogenase increased [Unknown]
  - Blood urea increased [Unknown]
  - Blood potassium decreased [Unknown]
  - Blood glucose increased [Unknown]
  - C-reactive protein increased [Unknown]
  - Fibrin D dimer increased [Unknown]
  - White blood cell count increased [Unknown]
  - Aspartate aminotransferase increased [Unknown]
  - Red blood cell count decreased [Unknown]
  - Haemoglobin decreased [Unknown]
  - Haematocrit decreased [Unknown]
  - Blood sodium decreased [Unknown]

NARRATIVE: CASE EVENT DATE: 20230101
